FAERS Safety Report 8067023-5 (Version None)
Quarter: 2012Q1

REPORT INFORMATION
  Report Type: 
  Country: None (occurrence: None)
  Receive Date: 20120124
  Receipt Date: 20120118
  Transmission Date: 20120608
  Serious: Yes (Other)
  Sender: FDA-Public Use
  Company Number: GB-JNJFOC-20111110964

PATIENT
  Sex: Female

DRUGS (2)
  1. EPIDURAL ANESTHESIA [Concomitant]
     Indication: FOETAL EXPOSURE DURING PREGNANCY
     Route: 065
     Dates: start: 20111004, end: 20111004
  2. STELARA [Suspect]
     Indication: EXPOSURE VIA SEMEN
     Route: 058

REACTIONS (3)
  - MATERNAL EXPOSURE DURING PREGNANCY [None]
  - PREMATURE LABOUR [None]
  - PREMATURE DELIVERY [None]
